FAERS Safety Report 25042487 (Version 1)
Quarter: 2025Q1

REPORT INFORMATION
  Report Type: Spontaneous
  Country: AT (occurrence: AT)
  Receive Date: 20250305
  Receipt Date: 20250305
  Transmission Date: 20250408
  Serious: Yes (Other)
  Sender: MYLAN
  Company Number: AT-002147023-NVSC2025AT026282

PATIENT
  Age: 36 Year
  Sex: Male

DRUGS (1)
  1. FINGOLIMOD [Suspect]
     Active Substance: FINGOLIMOD
     Indication: Relapsing-remitting multiple sclerosis

REACTIONS (3)
  - Multiple sclerosis [Unknown]
  - Monoparesis [Unknown]
  - Lymphocyte count decreased [Unknown]
